FAERS Safety Report 4675306-1 (Version None)
Quarter: 2005Q2

REPORT INFORMATION
  Report Type: 
  Country: None (occurrence: None)
  Receive Date: 20050525
  Receipt Date: 20050512
  Transmission Date: 20051028
  Serious: Yes (Congenital Anomaly, Other)
  Sender: FDA-Public Use
  Company Number: 2004219578GB

PATIENT
  Sex: Male
  Weight: 3.77 kg

DRUGS (2)
  1. PROVERA [Suspect]
     Indication: AMENORRHOEA
     Dosage: 60 MG (10 MG, EVERY DAY)
     Route: 064
  2. FERROUS SULFATE TAB [Concomitant]

REACTIONS (3)
  - DRUG EXPOSURE DURING PREGNANCY [None]
  - EXTRASYSTOLES [None]
  - HEART DISEASE CONGENITAL [None]
